FAERS Safety Report 6913767-5 (Version None)
Quarter: 2010Q3

REPORT INFORMATION
  Report Type: 
  Country: None (occurrence: None)
  Receive Date: 20100809
  Receipt Date: 20100726
  Transmission Date: 20110219
  Serious: Yes (Hospitalization)
  Sender: FDA-Public Use
  Company Number: JP-ROCHE-634572

PATIENT
  Sex: Female
  Weight: 72 kg

DRUGS (18)
  1. MYCOPHENOLATE MOFETIL [Suspect]
     Indication: PROPHYLAXIS AGAINST TRANSPLANT REJECTION
     Dosage: DOSE INCREASED
     Route: 048
     Dates: start: 20081016, end: 20081221
  2. MYCOPHENOLATE MOFETIL [Suspect]
     Dosage: DOSE DECREASED
     Route: 048
     Dates: start: 20081222, end: 20090514
  3. MYCOPHENOLATE MOFETIL [Suspect]
     Route: 048
     Dates: start: 20090515
  4. PREDONINE [Suspect]
     Indication: PROPHYLAXIS AGAINST TRANSPLANT REJECTION
     Route: 048
     Dates: start: 20081012, end: 20090108
  5. PREDONINE [Suspect]
     Route: 048
     Dates: start: 20090109
  6. NEORAL [Suspect]
     Indication: PROPHYLAXIS AGAINST TRANSPLANT REJECTION
     Route: 048
     Dates: start: 20081012, end: 20090311
  7. NEORAL [Suspect]
     Route: 048
     Dates: start: 20090312
  8. ZETIA [Concomitant]
     Dates: start: 20081027
  9. MICARDIS [Concomitant]
     Route: 048
     Dates: start: 20081111
  10. WYTENS [Concomitant]
     Route: 048
     Dates: start: 20081117
  11. ARTIST [Concomitant]
     Route: 048
     Dates: start: 20081211
  12. FLUITRAN [Concomitant]
     Dosage: TAKEN AS NEEDED
     Route: 048
     Dates: start: 20090122
  13. LASIX [Concomitant]
     Dosage: NOTE: TAKEN AS NEEDED
     Route: 048
     Dates: start: 20090212
  14. LIPITOR [Concomitant]
     Route: 048
     Dates: start: 20090312
  15. SALOBEL [Concomitant]
     Route: 048
     Dates: start: 20090709
  16. SIMVASTATIN [Concomitant]
     Route: 048
     Dates: start: 20081027
  17. TAKEPRON [Concomitant]
     Route: 048
     Dates: start: 20081023
  18. ALDACTONE [Concomitant]
     Route: 048
     Dates: start: 20081211

REACTIONS (22)
  - ACNE [None]
  - ANAEMIA [None]
  - ARTERIOVENOUS FISTULA [None]
  - BLOOD CREATININE INCREASED [None]
  - BLOOD TRIGLYCERIDES INCREASED [None]
  - CYTOMEGALOVIRUS TEST POSITIVE [None]
  - DERMATITIS CONTACT [None]
  - FACE OEDEMA [None]
  - GASTROENTERITIS [None]
  - HOT FLUSH [None]
  - HYPERKALAEMIA [None]
  - HYPERLIPIDAEMIA [None]
  - HYPERTENSION [None]
  - HYPERTRICHOSIS [None]
  - HYPERURICAEMIA [None]
  - MALAISE [None]
  - NASOPHARYNGITIS [None]
  - NEPHROPATHY TOXIC [None]
  - OEDEMA [None]
  - OEDEMA PERIPHERAL [None]
  - STOMATITIS [None]
  - URINARY TRACT INFECTION [None]
